FAERS Safety Report 22165881 (Version 1)
Quarter: 2023Q1

REPORT INFORMATION
  Report Type: Spontaneous
  Country: US (occurrence: None)
  Receive Date: 20230331
  Receipt Date: 20230331
  Transmission Date: 20230418
  Serious: Yes (Hospitalization)
  Sender: FDA-Public Use
  Company Number: None

PATIENT
  Age: 53 Year
  Sex: Female

DRUGS (1)
  1. COSENTYX [Suspect]
     Active Substance: SECUKINUMAB
     Indication: Ankylosing spondylitis
     Dosage: OTHER FREQUENCY : OTHER;?
     Route: 058
     Dates: start: 202001

REACTIONS (2)
  - Post procedural infection [None]
  - Spinal cord infection [None]

NARRATIVE: CASE EVENT DATE: 20230313
